FAERS Safety Report 14513530 (Version 1)
Quarter: 2018Q1

REPORT INFORMATION
  Report Type: Spontaneous
  Country: US (occurrence: US)
  Receive Date: 20180209
  Receipt Date: 20180209
  Transmission Date: 20180509
  Serious: No
  Sender: FDA-Public Use
  Company Number: US-ALLERGAN-1702450US

PATIENT
  Sex: Female

DRUGS (3)
  1. FISH OIL [Concomitant]
     Active Substance: FISH OIL
     Indication: SUPPLEMENTATION THERAPY
     Route: 048
  2. RESTASIS [Suspect]
     Active Substance: CYCLOSPORINE
     Indication: DRY EYE
     Dosage: UNK, BID
     Route: 047
     Dates: start: 20160520, end: 20161128
  3. REFRESH CELLUVISC [Concomitant]
     Active Substance: CARBOXYMETHYLCELLULOSE SODIUM
     Indication: DRY EYE
     Route: 047

REACTIONS (15)
  - Eyelid function disorder [Recovered/Resolved]
  - Palpitations [Recovering/Resolving]
  - Fatigue [Not Recovered/Not Resolved]
  - Depression [Recovered/Resolved]
  - Hyperhidrosis [Recovering/Resolving]
  - Pain [Not Recovered/Not Resolved]
  - Madarosis [Unknown]
  - Stress [Recovering/Resolving]
  - Chromaturia [Recovering/Resolving]
  - Alopecia [Unknown]
  - Cold sweat [Recovering/Resolving]
  - Hypokinesia [Not Recovered/Not Resolved]
  - Eye pain [Recovering/Resolving]
  - Peripheral swelling [Recovering/Resolving]
  - Urine odour abnormal [Recovering/Resolving]
